FAERS Safety Report 5484675-4 (Version None)
Quarter: 2007Q4

REPORT INFORMATION
  Report Type: 
  Country: None (occurrence: None)
  Receive Date: 20071012
  Receipt Date: 20071003
  Transmission Date: 20080405
  Serious: Yes (Other)
  Sender: FDA-Public Use
  Company Number: JP-PFIZER INC-2007081703

PATIENT
  Age: 44 Year
  Sex: Female

DRUGS (1)
  1. MEDROL [Suspect]
     Indication: SYSTEMIC LUPUS ERYTHEMATOSUS
     Dosage: DAILY DOSE:20MG
     Route: 048

REACTIONS (1)
  - HEPATIC ARTERY ANEURYSM [None]
